FAERS Safety Report 10256981 (Version 1)
Quarter: 2014Q2

REPORT INFORMATION
  Report Type: Spontaneous
  Country: US (occurrence: US)
  Receive Date: 20140625
  Receipt Date: 20140625
  Transmission Date: 20141212
  Serious: No
  Sender: FDA-Public Use
  Company Number: US-BIOGENIDEC-2014BI059264

PATIENT
  Sex: Female

DRUGS (2)
  1. AVONEX [Suspect]
     Indication: MULTIPLE SCLEROSIS
     Route: 030
  2. AVONEX [Suspect]
     Indication: MULTIPLE SCLEROSIS
     Route: 030
     Dates: start: 20051001

REACTIONS (8)
  - Multiple sclerosis [Unknown]
  - Hypoaesthesia [Unknown]
  - Stress [Unknown]
  - Muscular weakness [Unknown]
  - Anxiety [Unknown]
  - Fatigue [Unknown]
  - Pain [Unknown]
  - Paraesthesia [Unknown]
